FAERS Safety Report 13420745 (Version 1)
Quarter: 2017Q2

REPORT INFORMATION
  Report Type: Report from Study
  Country: US (occurrence: US)
  Receive Date: 20170409
  Receipt Date: 20170409
  Transmission Date: 20170830
  Serious: No
  Sender: FDA-Public Use
  Company Number: US-009507513-1704USA002168

PATIENT
  Sex: Female

DRUGS (1)
  1. V914 [Suspect]
     Active Substance: BACILLUS CALMETTE-GUERIN SUBSTRAIN TICE LIVE ANTIGEN
     Indication: PROPHYLAXIS
     Route: 065

REACTIONS (1)
  - Adverse event [Unknown]
